FAERS Safety Report 14388772 (Version 3)
Quarter: 2019Q2

REPORT INFORMATION
  Report Type: Spontaneous
  Country: US (occurrence: US)
  Receive Date: 20180115
  Receipt Date: 20190612
  Transmission Date: 20190711
  Serious: Yes (Other)
  Sender: FDA-Public Use
  Company Number: US-SA-2017SA224591

PATIENT
  Age: 58 Year
  Sex: Male
  Weight: 110.22 kg

DRUGS (4)
  1. TAXOTERE [Suspect]
     Active Substance: DOCETAXEL
     Indication: LARYNGEAL CANCER
     Dosage: 100 MG, Q3W
     Route: 042
     Dates: start: 20001114, end: 20001114
  2. TAXOTERE [Suspect]
     Active Substance: DOCETAXEL
     Dosage: 30 MG, Q3W
     Route: 042
     Dates: start: 20010312, end: 20010312
  3. FLUOROURACIL. [Concomitant]
     Active Substance: FLUOROURACIL
     Dosage: UNK UNK, UNK
     Route: 065
  4. CISPLATIN. [Concomitant]
     Active Substance: CISPLATIN
     Dosage: UNK UNK, UNK
     Route: 065

REACTIONS (1)
  - Alopecia [Recovering/Resolving]

NARRATIVE: CASE EVENT DATE: 200109
